FAERS Safety Report 8914845 (Version 6)
Quarter: 2017Q1

REPORT INFORMATION
  Report Type: Report from Study
  Country: BR (occurrence: BR)
  Receive Date: 20121119
  Receipt Date: 20170102
  Transmission Date: 20170429
  Serious: Yes (Other)
  Sender: FDA-Public Use
  Company Number: BR-ROCHE-1154760

PATIENT
  Age: 79 Year
  Sex: Female
  Weight: 46.5 kg

DRUGS (18)
  1. FOLIC ACID. [Concomitant]
     Active Substance: FOLIC ACID
     Indication: RHEUMATOID ARTHRITIS
     Route: 065
  2. NORIPURUM [Concomitant]
     Active Substance: IRON POLYMALTOSE
     Indication: ANAEMIA
     Route: 065
  3. DEFLAZACORTE [Concomitant]
     Active Substance: DEFLAZACORT
     Indication: PAIN
  4. METHOTREXATE. [Suspect]
     Active Substance: METHOTREXATE
     Indication: RHEUMATOID ARTHRITIS
     Dosage: 2 TABLETS AT LUNCH AND DINNER, ONCE A WEEK
     Route: 065
  5. FOLIC ACID. [Concomitant]
     Active Substance: FOLIC ACID
     Indication: ANAEMIA
     Dosage: 1 CHEWABLE TABLET PER DAY
     Route: 065
  6. ESOMEPRAZOLE [Concomitant]
     Active Substance: ESOMEPRAZOLE
  7. DEFLAZACORTE [Concomitant]
     Active Substance: DEFLAZACORT
     Indication: OSTEOARTHRITIS
     Dosage: TEMPORALLY IN DESCENDENT SCHEME. 1/5 TABLET IN THE MORNING ON ALTERNATE DAYS FOR 7 DAYS
     Route: 065
  8. TECNOMET [Suspect]
     Active Substance: METHOTREXATE
     Indication: PRODUCT USED FOR UNKNOWN INDICATION
     Route: 065
  9. ENDOFOLIN [Concomitant]
     Active Substance: FOLIC ACID
     Dosage: 1 TABLET 48HOURS AFTER OF METHOTREXATE USING
     Route: 065
  10. MABTHERA [Suspect]
     Active Substance: RITUXIMAB
     Indication: RHEUMATOID ARTHRITIS
     Dosage: LAST DOSE: 31/JAN/2013.
     Route: 042
     Dates: start: 20100201
  11. MABTHERA [Suspect]
     Active Substance: RITUXIMAB
     Route: 042
     Dates: start: 2013
  12. DEPURAN [Concomitant]
  13. ACLASTA [Concomitant]
     Active Substance: ZOLEDRONIC ACID
     Dosage: 1 INFUSION ONCE YEARLY
     Route: 065
  14. DEFLAZACORTE [Concomitant]
     Active Substance: DEFLAZACORT
     Indication: ARTHRITIS
  15. ROSUVASTATIN. [Suspect]
     Active Substance: ROSUVASTATIN
     Indication: HIGH DENSITY LIPOPROTEIN ABNORMAL
     Route: 065
  16. CRESTOR [Concomitant]
     Active Substance: ROSUVASTATIN CALCIUM
     Route: 065
  17. DONILA [Suspect]
     Active Substance: DONEPEZIL HYDROCHLORIDE
     Indication: AMNESIA
     Route: 065
  18. TECNOMET [Suspect]
     Active Substance: METHOTREXATE
     Route: 065

REACTIONS (16)
  - Pain [Unknown]
  - Joint swelling [Unknown]
  - Vomiting [Unknown]
  - Influenza [Recovering/Resolving]
  - Vitamin D decreased [Unknown]
  - Immunoglobulins decreased [Unknown]
  - Blood cholesterol abnormal [Unknown]
  - Immunodeficiency [Unknown]
  - Humerus fracture [Unknown]
  - Fall [Unknown]
  - Anaemia [Unknown]
  - Dementia Alzheimer^s type [Unknown]
  - Amnesia [Unknown]
  - Immunosuppression [Unknown]
  - Gastric disorder [Not Recovered/Not Resolved]
  - Asthenia [Unknown]

NARRATIVE: CASE EVENT DATE: 20120822
